FAERS Safety Report 7343825-5 (Version None)
Quarter: 2011Q1

REPORT INFORMATION
  Report Type: 
  Country: None (occurrence: None)
  Receive Date: 20110310
  Receipt Date: 20110303
  Transmission Date: 20110831
  Serious: Yes (Other)
  Sender: FDA-Public Use
  Company Number: US-PFIZER INC-2011048156

PATIENT

DRUGS (1)
  1. LYRICA [Suspect]
     Dosage: 600 MG, 1X/DAY

REACTIONS (6)
  - HALLUCINATION [None]
  - WITHDRAWAL SYNDROME [None]
  - NIGHTMARE [None]
  - MUSCLE SPASMS [None]
  - CHILLS [None]
  - TIC [None]
